FAERS Safety Report 8484170-4 (Version None)
Quarter: 2012Q3

REPORT INFORMATION
  Report Type: 
  Country: None (occurrence: None)
  Receive Date: 20120703
  Receipt Date: 20120627
  Transmission Date: 20120928
  Serious: Yes (Other)
  Sender: FDA-Public Use
  Company Number: US-AMGEN-USASP2012004334

PATIENT
  Age: 49 Year
  Sex: Female
  Weight: 98.6 kg

DRUGS (1)
  1. ENBREL [Suspect]
     Indication: RHEUMATOID ARTHRITIS
     Dosage: 50 MG, QWK
     Dates: start: 20111031

REACTIONS (4)
  - STAPHYLOCOCCAL SKIN INFECTION [None]
  - MENISCUS LESION [None]
  - ARTHRALGIA [None]
  - PAIN IN EXTREMITY [None]
